FAERS Safety Report 5720451-2 (Version None)
Quarter: 2008Q2

REPORT INFORMATION
  Report Type: 
  Country: None (occurrence: None)
  Receive Date: 20080428
  Receipt Date: 20080416
  Transmission Date: 20081010
  Serious: Yes (Death, Other)
  Sender: FDA-Public Use
  Company Number: GB-PFIZER INC-2008034858

PATIENT
  Sex: Female

DRUGS (6)
  1. LYRICA [Suspect]
     Indication: PAIN
  2. GABAPENTIN [Suspect]
     Indication: PAIN
  3. KETAMINE HYDROCHLORIDE [Suspect]
  4. OXYCODONE HCL [Concomitant]
  5. MIDAZOLAM HCL [Concomitant]
  6. DEXAMETHASONE [Concomitant]

REACTIONS (3)
  - CENTRAL NERVOUS SYSTEM LYMPHOMA [None]
  - DRUG INEFFECTIVE [None]
  - POLYNEUROPATHY IN MALIGNANT DISEASE [None]
